FAERS Safety Report 7535930-5 (Version None)
Quarter: 2011Q2

REPORT INFORMATION
  Report Type: 
  Country: None (occurrence: None)
  Receive Date: 20110602
  Receipt Date: 20110511
  Transmission Date: 20111010
  Serious: Yes (Hospitalization)
  Sender: FDA-Public Use
  Company Number: DKLU1070036

PATIENT
  Age: 11 Month
  Sex: Female

DRUGS (1)
  1. SABRIL [Suspect]
     Indication: PRODUCT USED FOR UNKNOWN INDICATION

REACTIONS (5)
  - SEPSIS [None]
  - RESPIRATORY SYNCYTIAL VIRUS INFECTION [None]
  - INFLUENZA [None]
  - BRONCHIOLITIS [None]
  - TREATMENT NONCOMPLIANCE [None]
